FAERS Safety Report 7112669-1 (Version None)
Quarter: 2010Q4

REPORT INFORMATION
  Report Type: 
  Country: None (occurrence: None)
  Receive Date: 20101119
  Receipt Date: 20101105
  Transmission Date: 20110411
  Serious: Yes (Hospitalization, Other)
  Sender: FDA-Public Use
  Company Number: PHHY2010TW74994

PATIENT
  Sex: Female
  Weight: 53 kg

DRUGS (1)
  1. ZOLEDRONATE T29581++BM [Suspect]
     Indication: METASTASES TO BONE
     Dosage: 4 MG
     Route: 042
     Dates: start: 20100916, end: 20101015

REACTIONS (5)
  - C-REACTIVE PROTEIN INCREASED [None]
  - COUGH [None]
  - LYMPHOCYTE COUNT DECREASED [None]
  - PYREXIA [None]
  - VOMITING [None]
